FAERS Safety Report 9579929 (Version 3)
Quarter: 2014Q3

REPORT INFORMATION
  Report Type: Spontaneous
  Country: CA (occurrence: CA)
  Receive Date: 20131002
  Receipt Date: 20140807
  Transmission Date: 20150326
  Serious: Yes (Other)
  Sender: FDA-Public Use
  Company Number: CA-ASTRAZENECA-2013SE71198

PATIENT
  Age: 56 Year
  Sex: Female

DRUGS (23)
  1. EZETROL [Concomitant]
     Active Substance: EZETIMIBE
  2. METHYLPREDNISOLONE [Concomitant]
     Active Substance: METHYLPREDNISOLONE
  3. SEMITOL [Concomitant]
  4. DIAMICRON [Suspect]
     Active Substance: GLICLAZIDE
     Indication: DIABETES MELLITUS
     Route: 065
     Dates: end: 2013
  5. DOMPERIDONE [Suspect]
     Active Substance: DOMPERIDONE
     Route: 065
     Dates: end: 2013
  6. DIPHENHYDRAMINE HYDROCHLORIDE. [Concomitant]
     Active Substance: DIPHENHYDRAMINE HYDROCHLORIDE
  7. ACETAMINOPHEN. [Concomitant]
     Active Substance: ACETAMINOPHEN
  8. RITUXAN [Suspect]
     Active Substance: RITUXIMAB
     Indication: SJOGREN^S SYNDROME
     Route: 065
     Dates: start: 20070525
  9. ALTACE [Concomitant]
     Active Substance: RAMIPRIL
  10. LYRICA [Suspect]
     Active Substance: PREGABALIN
     Route: 065
     Dates: end: 2013
  11. DEPO-MEDROL [Suspect]
     Active Substance: METHYLPREDNISOLONE ACETATE
     Route: 065
  12. SYNTHROID [Concomitant]
     Active Substance: LEVOTHYROXINE SODIUM
  13. ELTROXIN [Concomitant]
     Active Substance: LEVOTHYROXINE
  14. ATACAND [Concomitant]
     Active Substance: CANDESARTAN CILEXETIL
  15. LISINOPRIL. [Concomitant]
     Active Substance: LISINOPRIL
  16. NORVASC [Concomitant]
     Active Substance: AMLODIPINE BESYLATE
  17. JANUVIA [Concomitant]
     Active Substance: SITAGLIPTIN PHOSPHATE
  18. NEXIUM [Suspect]
     Active Substance: ESOMEPRAZOLE MAGNESIUM
     Route: 048
     Dates: end: 2013
  19. LANTUS [Suspect]
     Active Substance: INSULIN GLARGINE
     Route: 065
     Dates: end: 2013
  20. VITAMIN D [Concomitant]
     Active Substance: CHOLECALCIFEROL
  21. PREDNISONE. [Concomitant]
     Active Substance: PREDNISONE
  22. CRESTOR [Concomitant]
     Active Substance: ROSUVASTATIN CALCIUM
  23. APO-HYDRO [Concomitant]
     Active Substance: HYDROCHLOROTHIAZIDE

REACTIONS (3)
  - Vascular occlusion [Unknown]
  - Arthritis [Unknown]
  - Adverse drug reaction [Unknown]

NARRATIVE: CASE EVENT DATE: 2007
